FAERS Safety Report 7500724-3 (Version None)
Quarter: 2011Q2

REPORT INFORMATION
  Report Type: 
  Country: None (occurrence: None)
  Receive Date: 20110524
  Receipt Date: 20110516
  Transmission Date: 20111010
  Serious: Yes (Disabling, Other)
  Sender: FDA-Public Use
  Company Number: PHHY2011GB41107

PATIENT
  Age: 64 Year
  Sex: Female
  Weight: 66.5 kg

DRUGS (7)
  1. SYSTANE (PROPYLENE GLYCOL/MACROGOL) [Concomitant]
  2. DOXAZOSIN MESYLATE [Concomitant]
  3. DOXYCYCLINE [Concomitant]
  4. FEMOSTON [Concomitant]
     Dosage: UNK
     Dates: start: 20110107
  5. LOSARTAN POTASSIUM [Suspect]
  6. LACRI-LUBE [Concomitant]
     Dosage: UNK
     Dates: end: 20110323
  7. OPTIVE LUBRICANT EYE DROPS [Concomitant]
     Dosage: UNK
     Dates: end: 20110415

REACTIONS (1)
  - DRY EYE [None]
